FAERS Safety Report 22278299 (Version 1)
Quarter: 2023Q2

REPORT INFORMATION
  Report Type: Spontaneous
  Country: FR (occurrence: FR)
  Receive Date: 20230503
  Receipt Date: 20230503
  Transmission Date: 20230721
  Serious: Yes (Other)
  Sender: FDA-Public Use
  Company Number: FR-VIIV HEALTHCARE LIMITED-FR2023EME001903

PATIENT

DRUGS (12)
  1. VOCABRIA [Suspect]
     Active Substance: CABOTEGRAVIR SODIUM
     Indication: HIV infection CDC category B
     Dosage: UNK, 600/2 MONTHS
     Route: 030
     Dates: start: 20220804, end: 20221224
  2. VOCABRIA [Suspect]
     Active Substance: CABOTEGRAVIR SODIUM
     Dosage: UNK
     Route: 030
     Dates: start: 20221227, end: 20221227
  3. RILPIVIRINE [Suspect]
     Active Substance: RILPIVIRINE
     Indication: HIV infection CDC category B
     Dosage: UNK, 900/2 MONTHS
     Route: 030
     Dates: start: 20220804, end: 20221224
  4. RILPIVIRINE [Suspect]
     Active Substance: RILPIVIRINE
     Dosage: UNK
     Route: 030
     Dates: start: 20221227, end: 20221227
  5. JULUCA [Suspect]
     Active Substance: DOLUTEGRAVIR SODIUM\RILPIVIRINE HYDROCHLORIDE
     Indication: HIV infection CDC category B
     Dosage: 1 DF, QD
     Route: 048
     Dates: start: 201811, end: 202208
  6. VOCABRIA [Concomitant]
     Active Substance: CABOTEGRAVIR SODIUM
     Indication: HIV infection CDC category B
     Dosage: UNK
     Route: 048
     Dates: start: 20220701
  7. EDURANT [Concomitant]
     Active Substance: RILPIVIRINE HYDROCHLORIDE
     Indication: HIV infection CDC category B
     Dosage: UNK
     Route: 048
     Dates: start: 20220701
  8. SYMBICORT [Concomitant]
     Active Substance: BUDESONIDE\FORMOTEROL FUMARATE DIHYDRATE
     Indication: Product used for unknown indication
     Dosage: UNK, 200 UG
  9. ALBUTEROL [Concomitant]
     Active Substance: ALBUTEROL
     Indication: Product used for unknown indication
     Dosage: UNK, ON DEMAND
  10. CHOLECALCIFEROL [Concomitant]
     Active Substance: CHOLECALCIFEROL
     Indication: Product used for unknown indication
     Dosage: UNK, 100.000 UI: 1BULB/ 2 MONTHS
  11. ESOMEPRAZOLE [Concomitant]
     Active Substance: ESOMEPRAZOLE
     Indication: Product used for unknown indication
     Dosage: UNK, 40MG/J
  12. KETOPROFEN [Concomitant]
     Active Substance: KETOPROFEN
     Indication: Product used for unknown indication
     Dosage: UNK, 100MG/J IF NEEDED

REACTIONS (6)
  - Pathogen resistance [Recovered/Resolved with Sequelae]
  - Viral load increased [Recovered/Resolved with Sequelae]
  - Virologic failure [Recovered/Resolved with Sequelae]
  - Injection site pain [Recovered/Resolved]
  - Viral mutation identified [Recovered/Resolved with Sequelae]
  - Gastrooesophageal reflux disease [Unknown]

NARRATIVE: CASE EVENT DATE: 20220101
